FAERS Safety Report 6751980-0 (Version None)
Quarter: 2010Q2

REPORT INFORMATION
  Report Type: 
  Country: None (occurrence: None)
  Receive Date: 20100602
  Receipt Date: 20100528
  Transmission Date: 20101027
  Serious: Yes (Other)
  Sender: FDA-Public Use
  Company Number: US-JNJFOC-20100508740

PATIENT
  Age: 6 Year
  Sex: Female
  Weight: 19.96 kg

DRUGS (12)
  1. CHILDREN'S MOTRIN [Suspect]
     Indication: MULTIPLE ALLERGIES
     Dosage: EVERY 6-8 HOURS FOR 4 DAYS
     Route: 065
  2. CHILDREN'S MOTRIN [Suspect]
     Indication: NASOPHARYNGITIS
     Dosage: EVERY 6-8 HOURS FOR 4 DAYS
     Route: 065
  3. CHILDREN'S MOTRIN [Suspect]
     Indication: PYREXIA
     Dosage: EVERY 6-8 HOURS FOR 4 DAYS
     Route: 065
  4. CHILDREN'S TYLENOL SUSPENSION [Suspect]
     Indication: MULTIPLE ALLERGIES
     Route: 065
  5. CHILDREN'S TYLENOL SUSPENSION [Suspect]
     Indication: NASOPHARYNGITIS
     Route: 065
  6. CHILDREN'S TYLENOL SUSPENSION [Suspect]
     Indication: PYREXIA
     Route: 065
  7. ZYRTEC [Suspect]
     Indication: MULTIPLE ALLERGIES
     Route: 065
  8. ZYRTEC [Suspect]
     Indication: NASOPHARYNGITIS
     Route: 065
  9. ZYRTEC [Suspect]
     Indication: PYREXIA
     Route: 065
  10. CHILDREN'S TYLENOL PLUS COLD [Suspect]
     Indication: MULTIPLE ALLERGIES
     Route: 048
  11. CHILDREN'S TYLENOL PLUS COLD [Suspect]
     Indication: NASOPHARYNGITIS
     Route: 048
  12. CHILDREN'S TYLENOL PLUS COLD [Suspect]
     Indication: PYREXIA
     Route: 048

REACTIONS (4)
  - MALAISE [None]
  - PRODUCT QUALITY ISSUE [None]
  - PYREXIA [None]
  - RASH [None]
